FAERS Safety Report 5873850-2 (Version None)
Quarter: 2008Q3

REPORT INFORMATION
  Report Type: 
  Country: None (occurrence: None)
  Receive Date: 20080908
  Receipt Date: 20080825
  Transmission Date: 20090109
  Serious: Yes (Hospitalization)
  Sender: FDA-Public Use
  Company Number: US-ELI_LILLY_AND_COMPANY-US200808005071

PATIENT
  Sex: Male

DRUGS (10)
  1. BYETTA [Suspect]
     Indication: DIABETES MELLITUS
     Dosage: 5 UG, 2/D
     Route: 058
     Dates: start: 20060101, end: 20060101
  2. BYETTA [Suspect]
     Dosage: 10 UG, 2/D
     Route: 058
     Dates: start: 20060101
  3. METFORMIN HCL [Concomitant]
     Indication: DIABETES MELLITUS
     Dosage: 1000 MG, 2/D
     Route: 048
  4. HUMULIN /00646001/ [Concomitant]
     Indication: DIABETES MELLITUS
     Dosage: 60 U, EACH MORNING
     Route: 058
  5. HUMULIN /00646001/ [Concomitant]
     Dosage: 50 U, EACH EVENING
     Route: 058
  6. ALTACE [Concomitant]
  7. EFFEXOR [Concomitant]
  8. ALBUTEROL [Concomitant]
     Route: 055
  9. ANDROGEL [Concomitant]
  10. ZYRTEC [Concomitant]
     Indication: BLOOD CHOLESTEROL
     Dosage: 10 MG, UNK
     Route: 048

REACTIONS (6)
  - CATARACT [None]
  - CHEST PAIN [None]
  - CHRONIC OBSTRUCTIVE PULMONARY DISEASE [None]
  - MEMORY IMPAIRMENT [None]
  - MUSCLE DISORDER [None]
  - VISUAL IMPAIRMENT [None]
